FAERS Safety Report 19292290 (Version 1)
Quarter: 2021Q2

REPORT INFORMATION
  Report Type: Spontaneous
  Country: IE (occurrence: IE)
  Receive Date: 20210524
  Receipt Date: 20210524
  Transmission Date: 20210717
  Serious: Yes (Other)
  Sender: FDA-Public Use
  Company Number: IE-JNJFOC-20210531645

PATIENT
  Age: 27 Year
  Sex: Female

DRUGS (5)
  1. DOXYLAMINE [Concomitant]
     Active Substance: DOXYLAMINE
     Indication: MORNING SICKNESS
     Dosage: 4 CAPSULES DAILY
  2. XARELTO [Suspect]
     Active Substance: RIVAROXABAN
     Indication: CARDIAC VALVE PROSTHESIS USER
     Dosage: LONG?TERM.
     Route: 048
     Dates: end: 20210114
  3. ASPIRIN [ACETYLSALICYLIC ACID] [Concomitant]
     Active Substance: ASPIRIN
     Indication: PROPHYLAXIS
  4. PYRIDOXINE [Concomitant]
     Active Substance: PYRIDOXINE
     Indication: MORNING SICKNESS
     Dosage: 4 CAPSULES DAILY
  5. PROCHLORPERAZINE. [Concomitant]
     Active Substance: PROCHLORPERAZINE
     Indication: MORNING SICKNESS
     Dosage: 5MG TDS PRN

REACTIONS (2)
  - Maternal exposure during pregnancy [Recovered/Resolved]
  - Abortion spontaneous [Recovered/Resolved]

NARRATIVE: CASE EVENT DATE: 20210303
